FAERS Safety Report 20453322 (Version 1)
Quarter: 2022Q1

REPORT INFORMATION
  Report Type: Spontaneous
  Country: US (occurrence: None)
  Receive Date: 20220209
  Receipt Date: 20220209
  Transmission Date: 20220423
  Serious: Yes (Hospitalization, Other)
  Sender: FDA-Public Use
  Company Number: None

PATIENT
  Age: 64 Year
  Sex: Female

DRUGS (1)
  1. CAPECITABINE [Suspect]
     Active Substance: CAPECITABINE
     Indication: Neoplasm malignant
     Dosage: FREQUENCY : TWICE A DAY;?
     Route: 048
     Dates: start: 202108, end: 202112

REACTIONS (9)
  - Diarrhoea [None]
  - Dehydration [None]
  - Nausea [None]
  - Blood pressure decreased [None]
  - Pyrexia [None]
  - Gastroenteritis viral [None]
  - Gastrointestinal surgery [None]
  - Gastrointestinal wall abnormal [None]
  - Toxicity to various agents [None]

NARRATIVE: CASE EVENT DATE: 20211230
